FAERS Safety Report 16949566 (Version 1)
Quarter: 2019Q4

REPORT INFORMATION
  Report Type: Spontaneous
  Country: IT (occurrence: IT)
  Receive Date: 20191023
  Receipt Date: 20191023
  Transmission Date: 20200122
  Serious: Yes (Death, Life-Threatening, Other)
  Sender: FDA-Public Use
  Company Number: IT-AMGEN-ITASP2019173397

PATIENT
  Age: 28 Year
  Sex: Male

DRUGS (4)
  1. FILGRASTIM [Suspect]
     Active Substance: FILGRASTIM
     Indication: PRODUCT USED FOR UNKNOWN INDICATION
     Dosage: 300 MILLIGRAM, QD (FROM DAY 5 UNTIL BLOOD RECOVERY)
     Route: 058
  2. MESNA. [Concomitant]
     Active Substance: MESNA
     Dosage: UNK
  3. EPIRUBICIN [Concomitant]
     Active Substance: EPIRUBICIN
     Indication: ANGIOSARCOMA METASTATIC
     Dosage: 60 MG/M2 (DAYS 1 AND 2), 30 MG/M2 FOR TWO DAYS REPEATED EVERY 14 DAYS, 45 MG/M2 (ON DAYS 85 AND 100)
  4. IFOSFAMIDE. [Concomitant]
     Active Substance: IFOSFAMIDE
     Indication: ANGIOSARCOMA METASTATIC
     Dosage: 3000 MG/M2 (DAYS 1 TO 3), 1500 MG/M2, 2250 MG/M2 (ON DAYS 85 AND 100), 1000 MG/M2 DAILY

REACTIONS (14)
  - Aspartate aminotransferase increased [Unknown]
  - Alopecia [Unknown]
  - Gamma-glutamyltransferase increased [Unknown]
  - Angiosarcoma metastatic [Fatal]
  - Blood lactate dehydrogenase increased [Unknown]
  - Alanine aminotransferase increased [Unknown]
  - Blood fibrinogen increased [Unknown]
  - Blood bilirubin increased [Unknown]
  - Leukopenia [Unknown]
  - Anaemia [Unknown]
  - Thrombocytopenia [Unknown]
  - General physical health deterioration [Unknown]
  - Blood alkaline phosphatase increased [Unknown]
  - Neutropenia [Unknown]
